FAERS Safety Report 24685166 (Version 1)
Quarter: 2024Q4

REPORT INFORMATION
  Report Type: Report from Study
  Country: US (occurrence: US)
  Receive Date: 20241202
  Receipt Date: 20241202
  Transmission Date: 20250115
  Serious: Yes (Death, Other)
  Sender: CHEPLAPHARM
  Company Number: US-CHEPLA-2024014959

PATIENT
  Age: 29 Year
  Sex: Male

DRUGS (5)
  1. OLANZAPINE [Suspect]
     Active Substance: OLANZAPINE
     Indication: Agitation
     Route: 030
  2. OLANZAPINE [Suspect]
     Active Substance: OLANZAPINE
     Indication: Agitation
     Dosage: 6 MINUTES LATER WAS GIVEN 5 MG IV OLANZAPINE
     Route: 042
  3. ALCOHOL [Concomitant]
     Active Substance: ALCOHOL
  4. CANNABIS SATIVA SUBSP. INDICA TOP [Concomitant]
     Active Substance: CANNABIS SATIVA SUBSP. INDICA TOP
  5. MIDOMAFETAMINE [Concomitant]
     Active Substance: MIDOMAFETAMINE

REACTIONS (5)
  - Ventricular tachycardia [Unknown]
  - Ventricular fibrillation [Unknown]
  - Cardiac arrest [Fatal]
  - Chest pain [Unknown]
  - Off label use [Unknown]
